APPROVED DRUG PRODUCT: MORPHINE SULFATE
Active Ingredient: MORPHINE SULFATE
Strength: 20MG/5ML
Dosage Form/Route: SOLUTION;ORAL
Application: A201947 | Product #002
Applicant: VISTAPHARM INC
Approved: Jan 5, 2012 | RLD: No | RS: No | Type: DISCN